FAERS Safety Report 6755986-7 (Version None)
Quarter: 2010Q2

REPORT INFORMATION
  Report Type: 
  Country: None (occurrence: None)
  Receive Date: 20100604
  Receipt Date: 20100601
  Transmission Date: 20101027
  Serious: Yes (Death, Other)
  Sender: FDA-Public Use
  Company Number: PHHY2010CA19220

PATIENT
  Sex: Male

DRUGS (1)
  1. SANDOSTATIN LAR [Suspect]
     Indication: CARCINOID SYNDROME
     Dosage: 50 MG EVERY 2 WEEKS
     Route: 030
     Dates: start: 20070910, end: 20100520

REACTIONS (8)
  - ASTHENIA [None]
  - DEATH [None]
  - DECREASED APPETITE [None]
  - DIARRHOEA [None]
  - FATIGUE [None]
  - PARACENTESIS [None]
  - PARAESTHESIA [None]
  - WEIGHT DECREASED [None]
